FAERS Safety Report 13885570 (Version 2)
Quarter: 2017Q4

REPORT INFORMATION
  Report Type: Spontaneous
  Country: US (occurrence: US)
  Receive Date: 20170821
  Receipt Date: 20171026
  Transmission Date: 20180320
  Serious: No
  Sender: FDA-Public Use
  Company Number: US-PFIZER INC-2017354627

PATIENT
  Age: 59 Year
  Sex: Female
  Weight: 45 kg

DRUGS (1)
  1. TOVIAZ [Suspect]
     Active Substance: FESOTERODINE FUMARATE
     Indication: URINARY INCONTINENCE
     Dosage: 8 MG, DAILY(ONCE PER DAY)
     Route: 048
     Dates: start: 20170811, end: 20170815

REACTIONS (3)
  - Dysphonia [Recovered/Resolved]
  - Dry mouth [Recovered/Resolved]
  - Dry throat [Unknown]

NARRATIVE: CASE EVENT DATE: 201709
